FAERS Safety Report 8403277-0 (Version None)
Quarter: 2012Q2

REPORT INFORMATION
  Report Type: 
  Country: None (occurrence: None)
  Receive Date: 20120601
  Receipt Date: 20120525
  Transmission Date: 20120825
  Serious: Yes (Congenital Anomaly)
  Sender: FDA-Public Use
  Company Number: US-FRI-1000030891

PATIENT
  Sex: Female

DRUGS (1)
  1. LEXAPRO [Suspect]
     Route: 064

REACTIONS (4)
  - VENTRICULAR SEPTAL DEFECT [None]
  - FALLOT'S TETRALOGY [None]
  - PULMONARY ARTERY STENOSIS CONGENITAL [None]
  - DOUBLE OUTLET RIGHT VENTRICLE [None]
